FAERS Safety Report 8072823-1 (Version None)
Quarter: 2012Q1

REPORT INFORMATION
  Report Type: 
  Country: None (occurrence: None)
  Receive Date: 20120126
  Receipt Date: 20120126
  Transmission Date: 20120608
  Serious: Yes (Death, Hospitalization)
  Sender: FDA-Public Use
  Company Number: KR-BAYER-2012-008071

PATIENT
  Age: 69 Year
  Sex: Female
  Weight: 59 kg

DRUGS (8)
  1. ASPIRIN [Concomitant]
     Indication: HYPERTENSION
     Dosage: DAILY DOSE 100 MG
     Route: 048
     Dates: start: 20040101, end: 20120125
  2. NISOLDIPINE [Concomitant]
     Indication: HYPERTENSION
     Dosage: DAILY DOSE 10 MG
     Route: 048
     Dates: start: 20040101, end: 20120125
  3. BARACLUDE [Concomitant]
     Indication: HEPATITIS B
     Dosage: DAILY DOSE .5 MG
     Route: 048
     Dates: start: 20110322, end: 20120125
  4. NEXAVAR [Suspect]
     Indication: HEPATIC NEOPLASM MALIGNANT
     Dosage: 400 MG, BID
     Route: 048
     Dates: start: 20120102, end: 20120113
  5. CODEINE PHOSPHATE [Concomitant]
     Indication: COUGH
     Dosage: DAILY DOSE 20 MG
     Route: 048
     Dates: start: 20120109, end: 20120116
  6. GLUCOPHAGE [Concomitant]
     Indication: DIABETES MELLITUS
     Dosage: DAILY DOSE 250 MG
     Dates: start: 20040101, end: 20120125
  7. ASPIRIN [Concomitant]
  8. PROSPAN [Concomitant]
     Indication: COUGH
     Dosage: DAILY DOSE 7.5 ML
     Route: 048
     Dates: start: 20120109, end: 20120117

REACTIONS (1)
  - PERITONITIS BACTERIAL [None]
